FAERS Safety Report 9557489 (Version 1)
Quarter: 2013Q3

REPORT INFORMATION
  Report Type: Spontaneous
  Country: US (occurrence: US)
  Receive Date: 20130926
  Receipt Date: 20130926
  Transmission Date: 20140515
  Serious: No
  Sender: FDA-Public Use
  Company Number: US-BAYER-2013-116838

PATIENT
  Age: 73 Year
  Sex: Female
  Weight: 48.98 kg

DRUGS (1)
  1. ALEVE CAPLET [Suspect]
     Indication: ARTHRITIS
     Dosage: 1 DF, BID
     Route: 048
     Dates: start: 2010

REACTIONS (1)
  - Incorrect drug administration duration [None]
